FAERS Safety Report 24732026 (Version 1)
Quarter: 2024Q4

REPORT INFORMATION
  Report Type: Spontaneous
  Country: US (occurrence: US)
  Receive Date: 20241213
  Receipt Date: 20241213
  Transmission Date: 20250115
  Serious: No
  Sender: NOVARTIS
  Company Number: US-002147023-NVSC2024US237744

PATIENT
  Age: 64 Year
  Sex: Male

DRUGS (1)
  1. PLUVICTO [Suspect]
     Active Substance: LUTETIUM LU-177 VIPIVOTIDE TETRAXETAN
     Indication: Hormone-refractory prostate cancer
     Dosage: 160 DOSAGE FORM (Q6 WEEK) (160 MCI)
     Route: 042
     Dates: start: 20241114, end: 20241114

REACTIONS (1)
  - Defaecation urgency [Recovered/Resolved]

NARRATIVE: CASE EVENT DATE: 20241114
